FAERS Safety Report 11787256 (Version 8)
Quarter: 2016Q3

REPORT INFORMATION
  Report Type: Spontaneous
  Country: US (occurrence: US)
  Receive Date: 20151130
  Receipt Date: 20160715
  Transmission Date: 20161109
  Serious: Yes (Other)
  Sender: FDA-Public Use
  Company Number: US-UCBSA-2015037756

PATIENT
  Age: 31 Year
  Sex: Male
  Weight: 74.84 kg

DRUGS (21)
  1. VIMPAT [Suspect]
     Active Substance: LACOSAMIDE
     Dosage: 150 MG, 2X/DAY (BID)
     Route: 048
     Dates: start: 201505, end: 201505
  2. VIMPAT [Suspect]
     Active Substance: LACOSAMIDE
     Dosage: 200 MG/ DAY
  3. VIMPAT [Suspect]
     Active Substance: LACOSAMIDE
     Dosage: 150 MG/ DAY
     Dates: start: 20160130
  4. VIMPAT [Suspect]
     Active Substance: LACOSAMIDE
     Indication: GENERALISED TONIC-CLONIC SEIZURE
     Dosage: 7.5 ML, 2X/DAY (BID)
     Dates: start: 201603, end: 201603
  5. DEPAKOTE [Suspect]
     Active Substance: DIVALPROEX SODIUM
     Indication: PRODUCT USED FOR UNKNOWN INDICATION
     Dosage: 2000 MG DAILY, DELAYED RELEASE FORMULATION
  6. VIMPAT [Suspect]
     Active Substance: LACOSAMIDE
     Indication: GENERALISED TONIC-CLONIC SEIZURE
     Dosage: 100 MG, 2X/DAY (BID)
     Route: 048
     Dates: start: 20150201, end: 2015
  7. VIMPAT [Suspect]
     Active Substance: LACOSAMIDE
     Dosage: 50 MG, 2X/DAY (BID)
     Dates: start: 201511, end: 2015
  8. VIMPAT [Suspect]
     Active Substance: LACOSAMIDE
     Dosage: 150 MG/ DAY
     Dates: start: 201512
  9. DEPAKOTE [Suspect]
     Active Substance: DIVALPROEX SODIUM
     Indication: PRODUCT USED FOR UNKNOWN INDICATION
     Dosage: UNKNOWN DOSE;  EXTENDED RELEASE FORMULATION
     Dates: start: 20151206, end: 201512
  10. ATIVAN [Suspect]
     Active Substance: LORAZEPAM
     Indication: NERVOUSNESS
     Dosage: UNK
     Dates: start: 201605
  11. ONFI [Suspect]
     Active Substance: CLOBAZAM
     Indication: GENERALISED TONIC-CLONIC SEIZURE
     Dosage: 20 MG DAILY
     Route: 048
     Dates: start: 20151105, end: 2015
  12. ZONEGRAN [Concomitant]
     Active Substance: ZONISAMIDE
     Indication: PRODUCT USED FOR UNKNOWN INDICATION
     Dosage: UNK
  13. VIMPAT [Suspect]
     Active Substance: LACOSAMIDE
     Dosage: 100 MG, 2X/DAY (BID)
     Dates: start: 201505, end: 2015
  14. VIMPAT [Suspect]
     Active Substance: LACOSAMIDE
     Dosage: 125 MG, 2X/DAY (BID)
     Dates: start: 201507, end: 201509
  15. VIMPAT [Suspect]
     Active Substance: LACOSAMIDE
     Dosage: 200MG DAILY
     Dates: start: 20151121, end: 2015
  16. VIMPAT [Suspect]
     Active Substance: LACOSAMIDE
     Dosage: 100 MG, 2X/DAY (BID)
     Dates: start: 201601, end: 2016
  17. VIMPAT [Suspect]
     Active Substance: LACOSAMIDE
     Dosage: 100 MG, 2X/DAY (BID)
     Route: 048
     Dates: start: 2016
  18. ONFI [Suspect]
     Active Substance: CLOBAZAM
     Dosage: WEANING OFF
     Route: 048
     Dates: start: 2015
  19. VIMPAT [Suspect]
     Active Substance: LACOSAMIDE
     Dosage: 25 MG, 2X/DAY (DOSE TITRATION)
     Dates: start: 2015, end: 20151119
  20. DEPAKOTE [Suspect]
     Active Substance: DIVALPROEX SODIUM
     Dosage: 1750 MG, DELAYED RELEASE FORMULATION
     Dates: start: 201512, end: 201512
  21. DEPAKOTE [Suspect]
     Active Substance: DIVALPROEX SODIUM
     Dosage: 2000 MG/ DAY
     Dates: start: 201601

REACTIONS (23)
  - Posture abnormal [Not Recovered/Not Resolved]
  - Chromaturia [Not Recovered/Not Resolved]
  - Decreased appetite [Not Recovered/Not Resolved]
  - Loss of consciousness [Not Recovered/Not Resolved]
  - Feeling abnormal [Unknown]
  - Dyskinesia [Recovering/Resolving]
  - Limb injury [Recovered/Resolved]
  - Dyspnoea [Not Recovered/Not Resolved]
  - Ligament sprain [Not Recovered/Not Resolved]
  - Bruxism [Recovered/Resolved]
  - Abdominal pain upper [Not Recovered/Not Resolved]
  - Ataxia [Not Recovered/Not Resolved]
  - Fatigue [Not Recovered/Not Resolved]
  - Nervousness [Unknown]
  - Petit mal epilepsy [Not Recovered/Not Resolved]
  - Fall [Not Recovered/Not Resolved]
  - Nausea [Not Recovered/Not Resolved]
  - Dizziness [Not Recovered/Not Resolved]
  - Rectal abscess [Recovered/Resolved]
  - Generalised tonic-clonic seizure [Recovered/Resolved]
  - Syncope [Unknown]
  - Seizure [Not Recovered/Not Resolved]
  - Staring [Not Recovered/Not Resolved]

NARRATIVE: CASE EVENT DATE: 2015
